FAERS Safety Report 7238952-7 (Version None)
Quarter: 2011Q1

REPORT INFORMATION
  Report Type: 
  Country: None (occurrence: None)
  Receive Date: 20110119
  Receipt Date: 20110119
  Transmission Date: 20110831
  Serious: Yes (Hospitalization)
  Sender: FDA-Public Use
  Company Number: None

PATIENT
  Age: 52 Year
  Sex: Female
  Weight: 63.5036 kg

DRUGS (6)
  1. SPIRONOLACTONE [Concomitant]
  2. NEURONTIN [Concomitant]
  3. INVEGA [Suspect]
     Indication: BIPOLAR DISORDER
     Dosage: 6 MG ONCE DAILY PO
     Route: 048
     Dates: start: 20070101, end: 20091130
  4. LANTUS [Concomitant]
  5. HUMALOG [Concomitant]
  6. FUROSEMIDE [Concomitant]

REACTIONS (1)
  - ASTERIXIS [None]
